FAERS Safety Report 8277805-2 (Version None)
Quarter: 2012Q1

REPORT INFORMATION
  Report Type: 
  Country: None (occurrence: None)
  Receive Date: 20120312
  Receipt Date: 20120208
  Transmission Date: 20120608
  Serious: No
  Sender: FDA-Public Use
  Company Number: 2012SP007448

PATIENT
  Age: 29 Year
  Sex: Female

DRUGS (4)
  1. XANAX [Concomitant]
  2. SAPHRIS [Suspect]
     Indication: GENERALISED ANXIETY DISORDER
     Dosage: 5 MG;QD, 10 MG;QD, 15 MG;QD
     Dates: start: 20120119
  3. SAPHRIS [Suspect]
     Indication: GENERALISED ANXIETY DISORDER
     Dosage: 5 MG;QD, 10 MG;QD, 15 MG;QD
     Dates: start: 20120113
  4. SAPHRIS [Suspect]
     Indication: GENERALISED ANXIETY DISORDER
     Dosage: 5 MG;QD, 10 MG;QD, 15 MG;QD
     Dates: end: 20120202

REACTIONS (5)
  - VISION BLURRED [None]
  - PALPITATIONS [None]
  - INAPPROPRIATE SCHEDULE OF DRUG ADMINISTRATION [None]
  - DYSTONIA [None]
  - UNDERDOSE [None]
